FAERS Safety Report 5919048-0 (Version None)
Quarter: 2008Q4

REPORT INFORMATION
  Report Type: 
  Country: None (occurrence: None)
  Receive Date: 20081015
  Receipt Date: 20081006
  Transmission Date: 20090506
  Serious: Yes (Disabling)
  Sender: FDA-Public Use
  Company Number: US-CELGENEUS-163-21880-08081117

PATIENT
  Sex: Male

DRUGS (2)
  1. REVLIMID [Suspect]
     Indication: PROSTATE CANCER METASTATIC
     Route: 048
     Dates: start: 20080801, end: 20080822
  2. LEUKINE [Suspect]
     Indication: PROSTATE CANCER METASTATIC
     Route: 065

REACTIONS (2)
  - BONE PAIN [None]
  - DISEASE PROGRESSION [None]
